FAERS Safety Report 6696850-1 (Version None)
Quarter: 2010Q2

REPORT INFORMATION
  Report Type: 
  Country: None (occurrence: None)
  Receive Date: 20100426
  Receipt Date: 20100420
  Transmission Date: 20101027
  Serious: Yes (Life-Threatening, Disabling, Other)
  Sender: FDA-Public Use
  Company Number: US-MERCK-0910USA03017

PATIENT
  Age: 86 Year
  Sex: Male
  Weight: 70 kg

DRUGS (6)
  1. JANUVIA [Suspect]
     Indication: TYPE 2 DIABETES MELLITUS
     Route: 048
     Dates: start: 20060101, end: 20090101
  2. INSULIN [Concomitant]
     Route: 065
  3. ACTOS [Suspect]
     Indication: TYPE 2 DIABETES MELLITUS
     Route: 048
     Dates: start: 20000101
  4. STARLIX [Concomitant]
     Indication: TYPE 2 DIABETES MELLITUS
     Route: 048
     Dates: start: 20000101
  5. EXFORGE [Concomitant]
     Route: 048
     Dates: start: 20080101
  6. PREDNISONE [Concomitant]
     Indication: DERMATITIS
     Route: 065
     Dates: start: 20060101

REACTIONS (2)
  - IMPAIRED GASTRIC EMPTYING [None]
  - PANCREATITIS [None]
